FAERS Safety Report 11487066 (Version 2)
Quarter: 2015Q3

REPORT INFORMATION
  Report Type: Spontaneous
  Country: IT (occurrence: IT)
  Receive Date: 20150909
  Receipt Date: 20150911
  Transmission Date: 20151125
  Serious: Yes (Life-Threatening)
  Sender: FDA-Public Use
  Company Number: PHHY2015IT107134

PATIENT
  Sex: Female

DRUGS (7)
  1. TRIFLUOPERAZINE [Suspect]
     Active Substance: TRIFLUOPERAZINE\TRIFLUOPERAZINE HYDROCHLORIDE
     Indication: DRUG ABUSE
     Dosage: 60 MG
     Route: 048
     Dates: start: 20140909, end: 20140909
  2. QUETIAPIN HEXAL 25 MG FILMTABLETTEN [Suspect]
     Active Substance: QUETIAPINE
     Indication: DRUG ABUSE
     Dosage: 24
     Route: 048
     Dates: start: 20140909, end: 20140909
  3. LORAZEPAM. [Suspect]
     Active Substance: LORAZEPAM
     Indication: DRUG ABUSE
     Dosage: 10 ML
     Route: 048
     Dates: start: 20140909, end: 20140909
  4. CARBOLITHIUM [Suspect]
     Active Substance: LITHIUM CARBONATE
     Indication: DRUG ABUSE
     Dosage: 13
     Route: 048
     Dates: start: 20140909, end: 20140909
  5. TIZANIDINE. [Suspect]
     Active Substance: TIZANIDINE
     Indication: DRUG ABUSE
     Dosage: 80 MG
     Route: 048
     Dates: start: 20140909, end: 20140909
  6. STILNOX [Suspect]
     Active Substance: ZOLPIDEM TARTRATE
     Indication: DRUG ABUSE
     Dosage: 30
     Route: 048
     Dates: start: 20140909, end: 20140909
  7. CLONAZEPAM. [Suspect]
     Active Substance: CLONAZEPAM
     Indication: DRUG ABUSE
     Dosage: 26 MG
     Route: 048
     Dates: start: 20140909, end: 20140909

REACTIONS (2)
  - Drug abuse [Unknown]
  - Loss of consciousness [Unknown]
